FAERS Safety Report 13815223 (Version 1)
Quarter: 2017Q3

REPORT INFORMATION
  Report Type: Spontaneous
  Country: PT (occurrence: PT)
  Receive Date: 20170731
  Receipt Date: 20170731
  Transmission Date: 20171127
  Serious: Yes (Other)
  Sender: FDA-Public Use
  Company Number: PT-WEST-WARD PHARMACEUTICALS CORP.-PT-H14001-17-02825

PATIENT
  Age: 72 Year
  Sex: Female

DRUGS (2)
  1. GEMCITABINA AUROVITAS [Concomitant]
     Indication: CHOLANGIOCARCINOMA
     Route: 042
     Dates: start: 20170706, end: 20170706
  2. CARBOPLATINA HIKMA [Suspect]
     Active Substance: CARBOPLATIN
     Indication: CHOLANGIOCARCINOMA
     Route: 042
     Dates: start: 20170706, end: 20170706

REACTIONS (4)
  - Erythema [Recovered/Resolved]
  - Phlebitis [Recovered/Resolved]
  - Vasodilatation [Recovered/Resolved]
  - Pruritus [Recovered/Resolved]

NARRATIVE: CASE EVENT DATE: 20170706
